FAERS Safety Report 8223923-4 (Version None)
Quarter: 2012Q1

REPORT INFORMATION
  Report Type: 
  Country: None (occurrence: None)
  Receive Date: 20120321
  Receipt Date: 20120316
  Transmission Date: 20120608
  Serious: Yes (Other)
  Sender: FDA-Public Use
  Company Number: US-PFIZER INC-2012035511

PATIENT
  Age: 69 Year
  Sex: Female
  Weight: 87.1 kg

DRUGS (1)
  1. LYRICA [Suspect]
     Indication: DIABETIC NEUROPATHY
     Dosage: 100 MG, 2X/DAY
     Route: 048
     Dates: start: 20120101, end: 20120101

REACTIONS (5)
  - FAECAL INCONTINENCE [None]
  - WEIGHT INCREASED [None]
  - MUSCLE SPASMS [None]
  - DIZZINESS [None]
  - DRUG INTOLERANCE [None]
